FAERS Safety Report 6420520-8 (Version None)
Quarter: 2009Q4

REPORT INFORMATION
  Report Type: 
  Country: None (occurrence: None)
  Receive Date: 20091021
  Receipt Date: 20090810
  Transmission Date: 20100525
  Serious: Yes (Other)
  Sender: FDA-Public Use
  Company Number: SPV1-2009-01644

PATIENT
  Age: 21 Year
  Sex: Female
  Weight: 43.1 kg

DRUGS (2)
  1. VYVANSE [Suspect]
     Indication: ATTENTION DEFICIT/HYPERACTIVITY DISORDER
     Dosage: 20 MG, 1X/DAY: QD, ORAL, 20 MG, 1X/DAY: QD, ORAL
     Route: 048
     Dates: start: 20090808
  2. TRAZODONE HCL [Suspect]
     Indication: SLEEP DISORDER
     Dosage: 50 MG, AS REQ'D, ORAL
     Route: 048
     Dates: start: 20090808

REACTIONS (3)
  - CONVULSION [None]
  - HAEMATOCHEZIA [None]
  - TREMOR [None]
